FAERS Safety Report 7002570-6 (Version None)
Quarter: 2010Q3

REPORT INFORMATION
  Report Type: 
  Country: None (occurrence: None)
  Receive Date: 20100920
  Receipt Date: 20100323
  Transmission Date: 20110219
  Serious: No
  Sender: FDA-Public Use
  Company Number: US-ASTRAZENECA-2010SE04413

PATIENT
  Age: 74 Year
  Sex: Female

DRUGS (3)
  1. SEROQUEL [Suspect]
     Indication: SLEEP DISORDER
     Dosage: TWO TABLETS AT NIGHT
     Route: 048
     Dates: start: 20091101, end: 20100201
  2. SEROQUEL [Suspect]
     Dosage: 4 TABLETS AT BED TIME
     Route: 048
     Dates: start: 20100201
  3. ATIVAN [Concomitant]

REACTIONS (8)
  - BLOOD PROLACTIN ABNORMAL [None]
  - BREAST ENLARGEMENT [None]
  - EYE PAIN [None]
  - HEADACHE [None]
  - INSOMNIA [None]
  - JOINT SWELLING [None]
  - OEDEMA PERIPHERAL [None]
  - TERMINAL INSOMNIA [None]
